FAERS Safety Report 19756547 (Version 2)
Quarter: 2022Q3

REPORT INFORMATION
  Report Type: Other
  Country: US (occurrence: None)
  Receive Date: 20210827
  Receipt Date: 20220815
  Transmission Date: 20221027
  Serious: No
  Sender: FDA-Public Use
  Company Number: US-ROCHE-2892396

PATIENT
  Sex: Female
  Weight: 114.75 kg

DRUGS (4)
  1. OCREVUS [Suspect]
     Active Substance: OCRELIZUMAB
     Indication: Relapsing multiple sclerosis
     Dosage: THEN 600 MG EVERY 6 MONTHS?DATES OF TREATMENT: 20/AUG/2019, 04/SEP/2019, 22/APR/2020
     Route: 065
     Dates: start: 2019
  2. CIPROFLOXACIN [Concomitant]
     Active Substance: CIPROFLOXACIN
     Route: 048
  3. IBUPROFEN [Concomitant]
     Active Substance: IBUPROFEN
     Route: 048
  4. OXYCODONE AND ACETAMINOPHEN [Concomitant]
     Active Substance: ACETAMINOPHEN\OXYCODONE HYDROCHLORIDE
     Dosage: 5 MG - 325 MG
     Route: 048

REACTIONS (5)
  - Maternal exposure before pregnancy [Unknown]
  - Feeling abnormal [Unknown]
  - SARS-CoV-2 test positive [Unknown]
  - Malaise [Unknown]
  - Blood pressure increased [Unknown]
